FAERS Safety Report 10412918 (Version 1)
Quarter: 2014Q2

REPORT INFORMATION
  Report Type: Spontaneous
  Country: US (occurrence: None)
  Receive Date: 20140604
  Receipt Date: 20140604
  Transmission Date: 20141212
  Serious: No
  Sender: FDA-Public Use
  Company Number: 163-POMAL-14050378

PATIENT
  Age: 88 Year
  Sex: Female
  Weight: 50.8 kg

DRUGS (3)
  1. POMALYST (POMALIDOMIDE) (CAPSULES) [Suspect]
     Indication: PLASMA CELL MYELOMA
     Dosage: 4 MG, 21 IN 28 D, PO
     Route: 048
     Dates: start: 20140213
  2. LISINOPRIL [Concomitant]
  3. ACYCLOVIR (ACICLOVIR) [Concomitant]

REACTIONS (1)
  - Hypotension [None]
